FAERS Safety Report 6388343-6 (Version None)
Quarter: 2009Q4

REPORT INFORMATION
  Report Type: 
  Country: None (occurrence: None)
  Receive Date: 20091005
  Receipt Date: 20090928
  Transmission Date: 20100525
  Serious: Yes (Other)
  Sender: FDA-Public Use
  Company Number: US-MERCK-0909USA04768

PATIENT
  Age: 10 Year
  Sex: Male

DRUGS (1)
  1. SINGULAIR [Suspect]
     Route: 065
     Dates: start: 20081001

REACTIONS (4)
  - ANGER [None]
  - DEPRESSION [None]
  - NEGATIVE THOUGHTS [None]
  - SUICIDAL BEHAVIOUR [None]
